FAERS Safety Report 8177717-9 (Version None)
Quarter: 2012Q1

REPORT INFORMATION
  Report Type: 
  Country: None (occurrence: None)
  Receive Date: 20120301
  Receipt Date: 20120228
  Transmission Date: 20120608
  Serious: Yes (Death, Other)
  Sender: FDA-Public Use
  Company Number: PHHY2012CO015981

PATIENT
  Sex: Male

DRUGS (3)
  1. ZOLEDRONOC ACID [Suspect]
     Indication: OSTEOPOROSIS
     Dosage: UNK UKN, UNK
     Route: 042
     Dates: start: 20110101
  2. CALCITRIOL [Concomitant]
     Dosage: UNK UKN, UNK
  3. CALCIUM CARBONATE W/VITAMIN D NOS [Concomitant]
     Dosage: UNK UKN, UNK

REACTIONS (3)
  - POST PROCEDURAL COMPLICATION [None]
  - HEPATIC NEOPLASM [None]
  - GENERAL PHYSICAL HEALTH DETERIORATION [None]
